FAERS Safety Report 21458545 (Version 3)
Quarter: 2022Q4

REPORT INFORMATION
  Report Type: Spontaneous
  Country: DE (occurrence: DE)
  Receive Date: 20221014
  Receipt Date: 20221220
  Transmission Date: 20230113
  Serious: Yes (Other)
  Sender: FDA-Public Use
  Company Number: DE-SANOFI-01311634

PATIENT
  Age: 17 Year
  Sex: Male
  Weight: 57.2 kg

DRUGS (2)
  1. DUPIXENT [Suspect]
     Active Substance: DUPILUMAB
     Dosage: 200 MG
     Dates: start: 20220221
  2. EXTER [Concomitant]
     Dosage: UNK

REACTIONS (1)
  - Cataract [Unknown]
